FAERS Safety Report 5025623-0 (Version None)
Quarter: 2006Q2

REPORT INFORMATION
  Report Type: 
  Country: None (occurrence: None)
  Receive Date: 20060426
  Receipt Date: 20060315
  Transmission Date: 20061013
  Serious: Yes (Hospitalization, Other)
  Sender: FDA-Public Use
  Company Number: 2006036619

PATIENT
  Age: 75 Year
  Sex: Female
  Weight: 108.8633 kg

DRUGS (19)
  1. LYRICA [Suspect]
     Indication: DIABETIC NEUROPATHY
     Dosage: 100 MG (50 MG, 2 IN 1 D), ORAL
     Route: 048
     Dates: start: 20060201
  2. WARFARIN SODIUM [Concomitant]
  3. PACERONE [Concomitant]
  4. ARICEPT [Concomitant]
  5. LASIX [Concomitant]
  6. LOPID [Concomitant]
  7. SYNTHROID [Concomitant]
  8. K-DUR 10 [Concomitant]
  9. LIPITOR [Concomitant]
  10. PRINIVIL [Concomitant]
  11. GLUCOPHAGE [Concomitant]
  12. ZAROXOLYN [Concomitant]
  13. METOPROLOL SUCCINATE [Concomitant]
  14. PROTONIX [Concomitant]
  15. MONTELUKAST (MONTELUKAST) [Concomitant]
  16. COLACE (DOCUSATE SODIUM) [Concomitant]
  17. LANTUS [Concomitant]
  18. DITROPAN XL [Concomitant]
  19. ALL OTHER NON-THERAPEUTIC PRODUCTS (ALL OTHER NON-THERAPEUTIC PRODUCTS [Concomitant]

REACTIONS (4)
  - ABSCESS LIMB [None]
  - DIABETIC NEUROPATHY [None]
  - LIMB INJURY [None]
  - TREMOR [None]
